FAERS Safety Report 8428508-2 (Version None)
Quarter: 2012Q2

REPORT INFORMATION
  Report Type: 
  Country: None (occurrence: None)
  Receive Date: 20120612
  Receipt Date: 20120607
  Transmission Date: 20120825
  Serious: No
  Sender: FDA-Public Use
  Company Number: US-PFIZER INC-2012138288

PATIENT
  Age: 50 Year
  Sex: Female
  Weight: 65.76 kg

DRUGS (1)
  1. ADVIL LIQUI-GELS [Suspect]
     Indication: BACK PAIN
     Dosage: 200 MG, 2X/DAY
     Route: 048
     Dates: start: 20120101, end: 20120601

REACTIONS (1)
  - RASH [None]
